FAERS Safety Report 5747910-0 (Version None)
Quarter: 2008Q2

REPORT INFORMATION
  Report Type: 
  Country: None (occurrence: None)
  Receive Date: 20080523
  Receipt Date: 20080520
  Transmission Date: 20081010
  Serious: Yes (Hospitalization, Disabling, Other)
  Sender: FDA-Public Use
  Company Number: US-PURDUE-USA_2007_0028716

PATIENT
  Age: 16 Year
  Sex: Male

DRUGS (2)
  1. OXYCODONE HCL [Suspect]
     Indication: DRUG ABUSER
     Dosage: 100 MG, SEE TEXT
     Dates: start: 20070724
  2. ALPRAZOLAM [Suspect]
     Indication: DRUG ABUSER
     Dosage: 2 MG, SEE TEXT
     Dates: start: 20070724

REACTIONS (9)
  - BRAIN INJURY [None]
  - COMA [None]
  - CYANOSIS [None]
  - LOSS OF CONSCIOUSNESS [None]
  - MALAISE [None]
  - OVERDOSE [None]
  - SUBSTANCE ABUSE [None]
  - UNRESPONSIVE TO STIMULI [None]
  - VOMITING [None]
